FAERS Safety Report 7950902-4 (Version None)
Quarter: 2011Q4

REPORT INFORMATION
  Report Type: 
  Country: None (occurrence: None)
  Receive Date: 20111201
  Receipt Date: 20111128
  Transmission Date: 20120403
  Serious: No
  Sender: FDA-Public Use
  Company Number: US-BIOGENIDEC-2011BI004702

PATIENT
  Age: 27 Year
  Sex: Female

DRUGS (1)
  1. TYSABRI [Suspect]
     Indication: MULTIPLE SCLEROSIS
     Route: 042
     Dates: start: 20100419

REACTIONS (6)
  - GAIT DISTURBANCE [None]
  - BUNION [None]
  - PAIN [None]
  - BALANCE DISORDER [None]
  - FOOT DEFORMITY [None]
  - COORDINATION ABNORMAL [None]
